FAERS Safety Report 20316994 (Version 1)
Quarter: 2022Q1

REPORT INFORMATION
  Report Type: Spontaneous
  Country: US (occurrence: US)
  Receive Date: 20220110
  Receipt Date: 20220110
  Transmission Date: 20220423
  Serious: No
  Sender: FDA-Public Use
  Company Number: US-drreddys-SPO/USA/22/0145626

PATIENT
  Age: 66 Year
  Sex: Female
  Weight: 67.5 kg

DRUGS (2)
  1. DOANS EXTRA STRENGTH [Suspect]
     Active Substance: MAGNESIUM SALICYLATE
     Indication: Back pain
     Dosage: 1 OR 2 CAPLETS DEPENDING ON PAIN
     Dates: end: 20220104
  2. ZYRTEC [Concomitant]
     Active Substance: CETIRIZINE HYDROCHLORIDE
     Indication: Product used for unknown indication

REACTIONS (3)
  - Underdose [Unknown]
  - Incorrect dose administered [Unknown]
  - Product taste abnormal [Unknown]
